FAERS Safety Report 16749943 (Version 1)
Quarter: 2019Q3

REPORT INFORMATION
  Report Type: Spontaneous
  Country: CN (occurrence: CN)
  Receive Date: 20190828
  Receipt Date: 20190828
  Transmission Date: 20191005
  Serious: Yes (Hospitalization)
  Sender: FDA-Public Use
  Company Number: ALC2019CN000544

PATIENT
  Age: 52 Year
  Sex: Male
  Weight: 66 kg

DRUGS (1)
  1. FLUORESCITE [Suspect]
     Active Substance: FLUORESCEIN SODIUM
     Indication: OPTIC DISC HAEMORRHAGE
     Dosage: 3 ML, OT
     Route: 042
     Dates: start: 20190729, end: 20190729

REACTIONS (1)
  - Nausea [Recovering/Resolving]

NARRATIVE: CASE EVENT DATE: 20190729
